FAERS Safety Report 9069913 (Version 4)
Quarter: 2014Q1

REPORT INFORMATION
  Report Type: Report from Study
  Country: US (occurrence: US)
  Receive Date: 20130215
  Receipt Date: 20140203
  Transmission Date: 20141002
  Serious: Yes (Hospitalization)
  Sender: FDA-Public Use
  Company Number: US-JNJFOC-20130206870

PATIENT
  Age: 58 Year
  Sex: Male
  Weight: 129.28 kg

DRUGS (2)
  1. INFLIXIMAB, RECOMBINANT [Suspect]
     Indication: PSORIASIS
     Route: 042
     Dates: start: 200101
  2. ADALIMUMAB [Suspect]
     Indication: PSORIASIS
     Route: 065
     Dates: start: 200902

REACTIONS (2)
  - Histoplasmosis disseminated [Recovered/Resolved]
  - Renal tubular necrosis [Recovered/Resolved]
